FAERS Safety Report 13807805 (Version 1)
Quarter: 2017Q3

REPORT INFORMATION
  Report Type: Other
  Country: GB (occurrence: GB)
  Receive Date: 20170728
  Receipt Date: 20170728
  Transmission Date: 20171127
  Serious: Yes (Other)
  Sender: FDA-Public Use
  Company Number: GB-COVIS PHARMA S.A.R.L.-2017COV00050

PATIENT
  Age: 75 Year
  Sex: Female
  Weight: 62 kg

DRUGS (10)
  1. MIRABEGRON [Concomitant]
     Active Substance: MIRABEGRON
     Dosage: 1 DF, 1X/DAY
     Route: 065
     Dates: start: 20170413
  2. ACIDEX [Concomitant]
     Active Substance: CALCIUM CARBONATE\SODIUM ALGINATE\SODIUM BICARBONATE
     Dosage: 10 ML, 4X/DAY
     Route: 065
     Dates: start: 20170602
  3. RANITIDINE. [Concomitant]
     Active Substance: RANITIDINE
     Dosage: 1 DF, 2X/DAY
     Route: 065
     Dates: start: 20170207
  4. ZOPICLONE [Concomitant]
     Active Substance: ZOPICLONE
     Dosage: 1 DF, 1X/DAY
     Route: 065
     Dates: start: 20170606
  5. ASPIRIN. [Concomitant]
     Active Substance: ASPIRIN
     Dosage: 1 DF, 1X/DAY
     Route: 065
     Dates: start: 20160322, end: 20170606
  6. BISACODYL. [Concomitant]
     Active Substance: BISACODYL
     Dosage: 1 DF, 1X/DAY
     Route: 054
     Dates: start: 20160322
  7. ESTRADIOL. [Concomitant]
     Active Substance: ESTRADIOL
     Dosage: 1 DF, 2X/WEEK
     Route: 065
     Dates: start: 20160627
  8. LEVOTHYROXINE. [Concomitant]
     Active Substance: LEVOTHYROXINE
     Dosage: 1 DF, 1X/DAY
     Route: 065
     Dates: start: 20160322
  9. OMEPRAZOLE MAGNESIUM. [Suspect]
     Active Substance: OMEPRAZOLE MAGNESIUM
     Dosage: UNK
     Dates: start: 20170606
  10. ADALAT [Concomitant]
     Active Substance: NIFEDIPINE
     Dosage: 1 DF, 2X/DAY
     Route: 065
     Dates: start: 20170119

REACTIONS (2)
  - Acute kidney injury [Unknown]
  - Nephritis [Recovering/Resolving]

NARRATIVE: CASE EVENT DATE: 20170627
